FAERS Safety Report 16705726 (Version 1)
Quarter: 2019Q3

REPORT INFORMATION
  Report Type: Spontaneous
  Country: ES (occurrence: ES)
  Receive Date: 20190815
  Receipt Date: 20190815
  Transmission Date: 20191004
  Serious: Yes (Death)
  Sender: FDA-Public Use
  Company Number: ES-FERRINGPH-2019FE05003

PATIENT

DRUGS (3)
  1. DEXAMETHASONE. [Concomitant]
     Active Substance: DEXAMETHASONE
     Indication: BRAIN OEDEMA
     Route: 065
  2. LEVOTHYROXINE. [Concomitant]
     Active Substance: LEVOTHYROXINE
     Indication: HYPOPITUITARISM
     Route: 065
  3. DESMOPRESSIN [Suspect]
     Active Substance: DESMOPRESSIN
     Indication: DIABETES INSIPIDUS
     Route: 030

REACTIONS (2)
  - Respiratory tract infection [Fatal]
  - Hyponatraemia [Fatal]
